FAERS Safety Report 20135868 (Version 1)
Quarter: 2021Q4

REPORT INFORMATION
  Report Type: Spontaneous
  Country: US (occurrence: None)
  Receive Date: 20211201
  Receipt Date: 20211201
  Transmission Date: 20220303
  Serious: Yes (Life-Threatening)
  Sender: FDA-Public Use
  Company Number: None

PATIENT
  Age: 32 Year
  Sex: Male
  Weight: 79 kg

DRUGS (1)
  1. HALOPERIDOL [Suspect]
     Active Substance: HALOPERIDOL
     Indication: Agitation
     Dosage: FREQUENCY : AS NEEDED;?
     Route: 030
     Dates: start: 20210804, end: 20210804

REACTIONS (10)
  - Serotonin syndrome [None]
  - Neuroleptic malignant syndrome [None]
  - Drug withdrawal syndrome [None]
  - Pyrexia [None]
  - Hypertension [None]
  - Tachycardia [None]
  - Hyperreflexia [None]
  - Muscle rigidity [None]
  - Tremor [None]
  - Leukocytosis [None]

NARRATIVE: CASE EVENT DATE: 20210804
